FAERS Safety Report 25684935 (Version 1)
Quarter: 2025Q3

REPORT INFORMATION
  Report Type: Spontaneous
  Country: US (occurrence: None)
  Receive Date: 20250814
  Receipt Date: 20250814
  Transmission Date: 20251021
  Serious: Yes (Other)
  Sender: FDA-CTU
  Company Number: None

PATIENT
  Sex: Male

DRUGS (9)
  1. RINVOQ [Suspect]
     Active Substance: UPADACITINIB
     Route: 048
     Dates: start: 20220215
  2. AMLODIPINE POW BESYLATE [Concomitant]
  3. DEXAMETH PHO INJ [Concomitant]
  4. GABAPENTIN [Concomitant]
     Active Substance: GABAPENTIN
  5. HYPOXYCHLOR [Concomitant]
  6. LEFLUNOMIDE [Concomitant]
     Active Substance: LEFLUNOMIDE
  7. LISINOPRIL [Concomitant]
     Active Substance: LISINOPRIL
  8. OXYCODONE [Concomitant]
     Active Substance: OXYCODONE
  9. PREDNISONE [Concomitant]
     Active Substance: PREDNISONE

REACTIONS (1)
  - Spinal operation [None]
